FAERS Safety Report 13644462 (Version 1)
Quarter: 2017Q2

REPORT INFORMATION
  Report Type: Spontaneous
  Country: US (occurrence: US)
  Receive Date: 20170612
  Receipt Date: 20170612
  Transmission Date: 20170830
  Serious: No
  Sender: FDA-Public Use
  Company Number: US-ROCHE-1378796

PATIENT
  Sex: Female
  Weight: 54.03 kg

DRUGS (1)
  1. XELODA [Suspect]
     Active Substance: CAPECITABINE
     Indication: BREAST CANCER FEMALE
     Dosage: 7 DAYS ON AND 7 DAYS OFF.
     Route: 048
     Dates: start: 20131105

REACTIONS (1)
  - Abdominal discomfort [Unknown]
